FAERS Safety Report 9952275 (Version 2)
Quarter: 2014Q1

REPORT INFORMATION
  Report Type: Report from Study
  Country: US (occurrence: US)
  Receive Date: 20140304
  Receipt Date: 20140304
  Transmission Date: 20141002
  Serious: No
  Sender: FDA-Public Use
  Company Number: US-ABBVIE-12P-163-1028043-00

PATIENT
  Age: 81 Year
  Sex: Female

DRUGS (18)
  1. HUMIRA [Suspect]
     Indication: CROHN^S DISEASE
     Route: 058
     Dates: start: 201211, end: 201212
  2. HUMIRA [Suspect]
     Route: 058
     Dates: start: 20130226, end: 201303
  3. HUMIRA [Suspect]
     Route: 058
     Dates: start: 201304
  4. PENTASA [Concomitant]
     Indication: CROHN^S DISEASE
  5. PREDNISONE [Concomitant]
     Indication: PRODUCT USED FOR UNKNOWN INDICATION
  6. LISINOPRIL [Concomitant]
     Indication: HYPERTENSION
  7. FUROSEMIDE [Concomitant]
     Indication: PRODUCT USED FOR UNKNOWN INDICATION
  8. LEXAPRO [Concomitant]
     Indication: ANXIETY
  9. KLOR-CON [Concomitant]
     Indication: PRODUCT USED FOR UNKNOWN INDICATION
  10. COMBIGAN [Concomitant]
     Indication: PRODUCT USED FOR UNKNOWN INDICATION
  11. LUMIGAN [Concomitant]
     Indication: GLAUCOMA
  12. MULTIVITAMIN [Concomitant]
     Indication: PRODUCT USED FOR UNKNOWN INDICATION
  13. VITAMIN B 12 [Concomitant]
     Indication: PRODUCT USED FOR UNKNOWN INDICATION
  14. CALTRATE [Concomitant]
     Indication: PRODUCT USED FOR UNKNOWN INDICATION
  15. REFRESH LIQUID GEL [Concomitant]
     Indication: PRODUCT USED FOR UNKNOWN INDICATION
  16. PREVALITE POWDER [Concomitant]
     Indication: CROHN^S DISEASE
     Dosage: QHS
  17. LASIX [Concomitant]
     Indication: HYPERTENSION
  18. DILTIAZEM [Concomitant]
     Indication: HYPERTENSION

REACTIONS (6)
  - Nail disorder [Not Recovered/Not Resolved]
  - Herpes zoster [Recovered/Resolved]
  - Abdominal pain [Not Recovered/Not Resolved]
  - Oral neoplasm [Recovered/Resolved]
  - Oral neoplasm [Not Recovered/Not Resolved]
  - Tooth infection [Unknown]
